FAERS Safety Report 11074216 (Version 2)
Quarter: 2015Q2

REPORT INFORMATION
  Report Type: Report from Study
  Country: DE (occurrence: DE)
  Receive Date: 20150429
  Receipt Date: 20150501
  Transmission Date: 20150821
  Serious: Yes (Hospitalization)
  Sender: FDA-Public Use
  Company Number: DE-ROCHE-1569674

PATIENT
  Age: 60 Year
  Sex: Male
  Weight: 62.5 kg

DRUGS (4)
  1. FLUOROURACIL. [Suspect]
     Active Substance: FLUOROURACIL
     Indication: COLORECTAL CANCER METASTATIC
     Dosage: MOST RECENT DOSE 13/APR/2015?TEMPORARILY DISCONTINUED 27/APR/2015; PROBALE RESTART 04/MAY/2015
     Route: 042
     Dates: start: 20141015
  2. BEVACIZUMAB [Suspect]
     Active Substance: BEVACIZUMAB
     Indication: COLORECTAL CANCER METASTATIC
     Dosage: MOST RECENT DOSE 13/APR/2015?TEMPORARILY DISCONTINUED 27/APR/2015; PROBABLE RESTART ON 04/MAY/2015
     Route: 042
     Dates: start: 20141015
  3. OXALIPLATIN. [Suspect]
     Active Substance: OXALIPLATIN
     Indication: COLORECTAL CANCER METASTATIC
     Dosage: MOST RECENT DOSE 23/MAR/2015?LAST DOSE ADMINISTERED 152, 15 MG/M2
     Route: 042
     Dates: start: 20141015
  4. FOLINIC ACID [Suspect]
     Active Substance: LEUCOVORIN
     Indication: COLORECTAL CANCER METASTATIC
     Dosage: MOST RECENT DOSE 13/APR/2015?TEMPORARILY DISCONTINUED 27/APR/2015: PROBABLE RESTART ON 04/MAY/2015
     Route: 042
     Dates: start: 20141015

REACTIONS (1)
  - Anaemia [Not Recovered/Not Resolved]

NARRATIVE: CASE EVENT DATE: 20150427
